FAERS Safety Report 18945930 (Version 2)
Quarter: 2021Q1

REPORT INFORMATION
  Report Type: Report from Study
  Country: PA (occurrence: PA)
  Receive Date: 20210226
  Receipt Date: 20210315
  Transmission Date: 20210420
  Serious: Yes (Other)
  Sender: FDA-Public Use
  Company Number: NVSC2021PA043593

PATIENT
  Sex: Female

DRUGS (3)
  1. KISQALI [Suspect]
     Active Substance: RIBOCICLIB
     Indication: BREAST CANCER
     Dosage: 600 MG, QD
     Route: 048
     Dates: start: 201910
  2. KISQALI [Suspect]
     Active Substance: RIBOCICLIB
     Dosage: 1 DF QD
     Route: 065
     Dates: start: 201910
  3. ANASTROZOLE. [Suspect]
     Active Substance: ANASTROZOLE
     Indication: BREAST CANCER
     Dosage: 3 DF, QD
     Route: 065
     Dates: start: 201910

REACTIONS (4)
  - Malaise [Unknown]
  - Breast pain [Unknown]
  - Breast disorder [Unknown]
  - Bone disorder [Unknown]
